FAERS Safety Report 8432929-1 (Version None)
Quarter: 2012Q2

REPORT INFORMATION
  Report Type: 
  Country: None (occurrence: None)
  Receive Date: 20120613
  Receipt Date: 20120605
  Transmission Date: 20120825
  Serious: Yes (Hospitalization, Other)
  Sender: FDA-Public Use
  Company Number: US-JNJFOC-20101100405

PATIENT
  Sex: Female

DRUGS (4)
  1. LEVAQUIN [Suspect]
     Indication: CHRONIC OBSTRUCTIVE PULMONARY DISEASE
     Route: 048
     Dates: start: 20080901, end: 20081101
  2. PREDNISONE [Suspect]
     Indication: ANTIINFLAMMATORY THERAPY
     Route: 065
  3. TEQUIN [Suspect]
     Indication: INFECTION
     Route: 065
  4. CIPROFLOXACIN [Suspect]
     Indication: INFECTION
     Route: 065

REACTIONS (3)
  - ARTHRALGIA [None]
  - TENDON RUPTURE [None]
  - ROTATOR CUFF SYNDROME [None]
